FAERS Safety Report 10777914 (Version 1)
Quarter: 2015Q1

REPORT INFORMATION
  Report Type: Spontaneous
  Country: US (occurrence: US)
  Receive Date: 20150209
  Receipt Date: 20150209
  Transmission Date: 20150721
  Serious: No
  Sender: FDA-Public Use
  Company Number: US-AMGEN-USASP2014012420

PATIENT
  Age: 72 Year
  Sex: Female

DRUGS (3)
  1. CARBOPLATIN. [Concomitant]
     Active Substance: CARBOPLATIN
     Indication: BREAST CANCER
     Dosage: UNK
  2. NEULASTA [Suspect]
     Active Substance: PEGFILGRASTIM
     Indication: PRODUCT USED FOR UNKNOWN INDICATION
     Dosage: UNK UNK, AFTER CHEMO
     Route: 065
  3. TAXOL [Concomitant]
     Active Substance: PACLITAXEL
     Indication: BREAST CANCER
     Dosage: UNK

REACTIONS (2)
  - Mobility decreased [Unknown]
  - Bone pain [Unknown]
